FAERS Safety Report 22598544 (Version 1)
Quarter: 2023Q2

REPORT INFORMATION
  Report Type: Spontaneous
  Country: CN (occurrence: CN)
  Receive Date: 20230614
  Receipt Date: 20230614
  Transmission Date: 20230721
  Serious: Yes (Hospitalization, Other)
  Sender: FDA-Public Use
  Company Number: None

PATIENT
  Age: 35 Year
  Sex: Female

DRUGS (6)
  1. CYCLOPHOSPHAMIDE [Suspect]
     Active Substance: CYCLOPHOSPHAMIDE
     Indication: Breast cancer female
     Dosage: 700 MG, QD, DILUTED WITH 250 ML OF SODIUM CHLORIDE
     Route: 041
     Dates: start: 20230510, end: 20230510
  2. SODIUM CHLORIDE [Suspect]
     Active Substance: SODIUM CHLORIDE
     Indication: Medication dilution
     Dosage: 250 ML, QD, USED TO DILUTE 700 MG OF CYCLOPHOSPHAMIDE FOR INJECTION
     Route: 041
     Dates: start: 20230510, end: 20230510
  3. SODIUM CHLORIDE [Suspect]
     Active Substance: SODIUM CHLORIDE
     Dosage: 250 ML, QD, USED TO DILUTE 110 MG OF DOCETAXEL
     Route: 041
     Dates: start: 20230510, end: 20230510
  4. DEXTROSE [Suspect]
     Active Substance: DEXTROSE\DEXTROSE MONOHYDRATE
     Indication: Medication dilution
     Dosage: 5% 250 ML, QD, USED TO DILUTE 20 MG OF DOXORUBICIN HYDROCHLORIDE LIPOSOME
     Route: 041
     Dates: start: 20230510, end: 20230510
  5. DOCETAXEL [Suspect]
     Active Substance: DOCETAXEL
     Indication: Breast cancer female
     Dosage: 110 MG, QD, DILUTED WITH 250 ML OF SODIUM CHLORIDE
     Route: 041
     Dates: start: 20230510, end: 20230510
  6. DOXORUBICIN HYDROCHLORIDE [Suspect]
     Active Substance: DOXORUBICIN HYDROCHLORIDE
     Indication: Breast cancer female
     Dosage: 20 MG, QD, DILUTED WITH 250 ML OF 5% GLUCOSE INJECTION
     Route: 041
     Dates: start: 20230510, end: 20230510

REACTIONS (1)
  - Granulocytopenia [Recovering/Resolving]

NARRATIVE: CASE EVENT DATE: 20230518
